FAERS Safety Report 16686260 (Version 1)
Quarter: 2019Q3

REPORT INFORMATION
  Report Type: Spontaneous
  Country: GB (occurrence: GB)
  Receive Date: 20190809
  Receipt Date: 20190809
  Transmission Date: 20191004
  Serious: Yes (Hospitalization)
  Sender: FDA-Public Use
  Company Number: GB-JNJFOC-20190711853

PATIENT
  Age: 47 Year
  Sex: Female

DRUGS (1)
  1. REGAINE 5% FOAM [Suspect]
     Active Substance: MINOXIDIL
     Indication: ALOPECIA
     Dosage: AS PER INSTRUCTIONS FOR 2 DAYS
     Route: 061
     Dates: start: 20190610

REACTIONS (4)
  - Application site mass [Recovered/Resolved]
  - Application site rash [Recovered/Resolved]
  - Application site vesicles [Recovered/Resolved]
  - Application site pain [Recovered/Resolved]

NARRATIVE: CASE EVENT DATE: 20190612
